FAERS Safety Report 11567601 (Version 2)
Quarter: 2018Q2

REPORT INFORMATION
  Report Type: Spontaneous
  Country: DK (occurrence: DK)
  Receive Date: 20150929
  Receipt Date: 20180424
  Transmission Date: 20180711
  Serious: Yes (Hospitalization)
  Sender: FDA-Public Use
  Company Number: DK-ROCHE-1469101

PATIENT
  Age: 70 Year
  Sex: Female

DRUGS (6)
  1. ZOMETA [Suspect]
     Active Substance: ZOLEDRONIC ACID
     Indication: METASTASES TO BONE
     Route: 042
     Dates: start: 20121001
  2. TAXOTERE [Concomitant]
     Active Substance: DOCETAXEL
     Indication: BREAST CANCER METASTATIC
     Route: 042
     Dates: start: 20121018
  3. BONDRONAT [Suspect]
     Active Substance: IBANDRONIC ACID
     Indication: METASTASES TO BONE
     Route: 048
     Dates: start: 20130701, end: 20140429
  4. ZOMETA [Suspect]
     Active Substance: ZOLEDRONIC ACID
     Route: 042
     Dates: start: 20121018, end: 201307
  5. FASLODEX [Concomitant]
     Active Substance: FULVESTRANT
     Indication: BREAST CANCER METASTATIC
     Route: 030
     Dates: start: 201504, end: 201506
  6. LETROZOLE. [Concomitant]
     Active Substance: LETROZOLE
     Indication: BREAST CANCER METASTATIC
     Route: 048
     Dates: start: 201307, end: 201504

REACTIONS (9)
  - Oral cavity fistula [Unknown]
  - Osteonecrosis of jaw [Recovering/Resolving]
  - Jaw operation [Unknown]
  - Asthenia [Unknown]
  - Osteitis [Unknown]
  - Exposed bone in jaw [Unknown]
  - Jaw lesion excision [Unknown]
  - Poor dental condition [Not Recovered/Not Resolved]
  - Hypophagia [Unknown]

NARRATIVE: CASE EVENT DATE: 2014
